FAERS Safety Report 13616024 (Version 1)
Quarter: 2017Q2

REPORT INFORMATION
  Report Type: Spontaneous
  Country: US (occurrence: US)
  Receive Date: 20170606
  Receipt Date: 20170606
  Transmission Date: 20170830
  Serious: Yes (Other)
  Sender: FDA-Public Use
  Company Number: US-ELI_LILLY_AND_COMPANY-US201706001029

PATIENT
  Sex: Male

DRUGS (1)
  1. CYRAMZA [Suspect]
     Active Substance: RAMUCIRUMAB
     Indication: COLON NEOPLASM
     Dosage: 624 MG, CYCLICAL
     Route: 042
     Dates: start: 20161220

REACTIONS (1)
  - Malignant neoplasm progression [Not Recovered/Not Resolved]
